FAERS Safety Report 23162194 (Version 7)
Quarter: 2023Q4

REPORT INFORMATION
  Report Type: Report from Study
  Country: NO (occurrence: NO)
  Receive Date: 20231109
  Receipt Date: 20231207
  Transmission Date: 20240110
  Serious: Yes (Hospitalization)
  Sender: FDA-Public Use
  Company Number: NO-SA-SAC20231106000921

PATIENT
  Age: 67 Year
  Sex: Female
  Weight: 76.1 kg

DRUGS (29)
  1. ISATUXIMAB [Suspect]
     Active Substance: ISATUXIMAB
     Indication: Plasma cell myeloma refractory
     Dosage: 10 MG/KG
     Route: 042
     Dates: start: 20231017, end: 20231017
  2. ISATUXIMAB [Suspect]
     Active Substance: ISATUXIMAB
     Dosage: 10 MG/KG
     Route: 042
     Dates: start: 20231031, end: 20231031
  3. ISATUXIMAB [Suspect]
     Active Substance: ISATUXIMAB
     Dosage: 10 MG/KG
     Route: 042
     Dates: start: 20231115, end: 20231115
  4. THOR-707 [Suspect]
     Active Substance: THOR-707
     Indication: Plasma cell myeloma refractory
     Dosage: 16 MG/KG
     Route: 042
     Dates: start: 20231016, end: 20231016
  5. THOR-707 [Suspect]
     Active Substance: THOR-707
     Dosage: 16 MG/KG
     Route: 042
     Dates: start: 20231031, end: 20231031
  6. THOR-707 [Suspect]
     Active Substance: THOR-707
     Dosage: 10 MG/KG
     Route: 042
     Dates: start: 20231115, end: 20231115
  7. CALCIUM [Concomitant]
     Active Substance: CALCIUM
     Indication: Prophylaxis
     Dosage: UNK
     Route: 048
     Dates: start: 2015
  8. CHOLECALCIFEROL [Concomitant]
     Active Substance: CHOLECALCIFEROL
     Indication: Prophylaxis
     Dosage: UNK
     Route: 048
     Dates: start: 2015
  9. VITAMIN C [Concomitant]
     Active Substance: ASCORBIC ACID
     Indication: Prophylaxis
     Dosage: UNK
     Route: 048
     Dates: start: 2016
  10. MAGNESIUM [Concomitant]
     Active Substance: MAGNESIUM
     Indication: Prophylaxis
     Dosage: UNK
     Route: 048
     Dates: start: 2016
  11. PANTOPRAZOLE SODIUM [Concomitant]
     Active Substance: PANTOPRAZOLE SODIUM
     Dosage: UNK
     Route: 048
     Dates: start: 202106
  12. IMMUNE GLOBULIN NOS [Concomitant]
     Active Substance: IMMUNE GLOBULIN NOS
     Indication: Prophylaxis
     Dosage: UNK
     Route: 042
     Dates: start: 20220225
  13. PIPERACILLIN AND TAZOBACTAM [Concomitant]
     Active Substance: PIPERACILLIN SODIUM\TAZOBACTAM SODIUM
     Dosage: UNK
     Route: 042
     Dates: start: 20231016, end: 20231018
  14. VALACYCLOVIR HYDROCHLORIDE [Concomitant]
     Active Substance: VALACYCLOVIR HYDROCHLORIDE
     Indication: Prophylaxis
     Dosage: UNK
     Route: 048
     Dates: start: 20230206
  15. SODIUM CHLORIDE [Concomitant]
     Active Substance: SODIUM CHLORIDE
     Indication: Prophylaxis
     Dosage: UNK
     Route: 042
     Dates: start: 20231031, end: 20231031
  16. CETIRIZINE HYDROCHLORIDE [Concomitant]
     Active Substance: CETIRIZINE HYDROCHLORIDE
     Indication: Prophylaxis
     Dosage: UNK
     Route: 048
     Dates: start: 20231023, end: 20231023
  17. CETIRIZINE HYDROCHLORIDE [Concomitant]
     Active Substance: CETIRIZINE HYDROCHLORIDE
     Dosage: UNK
     Route: 048
     Dates: start: 20231031, end: 20231031
  18. CETIRIZINE HYDROCHLORIDE [Concomitant]
     Active Substance: CETIRIZINE HYDROCHLORIDE
     Dosage: UNK
     Route: 048
     Dates: start: 20231106, end: 20231106
  19. CETIRIZINE HYDROCHLORIDE [Concomitant]
     Active Substance: CETIRIZINE HYDROCHLORIDE
     Dosage: UNK
     Route: 048
     Dates: start: 20231115, end: 20231115
  20. MONTELUKAST [Concomitant]
     Active Substance: MONTELUKAST SODIUM
     Indication: Prophylaxis
     Dosage: UNK
     Route: 048
     Dates: start: 20231023, end: 20231023
  21. MONTELUKAST [Concomitant]
     Active Substance: MONTELUKAST SODIUM
     Dosage: UNK
     Route: 048
     Dates: start: 20231031, end: 20231031
  22. MONTELUKAST [Concomitant]
     Active Substance: MONTELUKAST SODIUM
     Dosage: UNK
     Route: 048
     Dates: start: 20231106, end: 20231106
  23. DEXAMETHASONE [Concomitant]
     Active Substance: DEXAMETHASONE
     Indication: Prophylaxis
     Dosage: UNK
     Route: 048
     Dates: start: 20231031, end: 20231031
  24. DEXAMETHASONE [Concomitant]
     Active Substance: DEXAMETHASONE
     Dosage: UNK
     Route: 048
     Dates: start: 20231106, end: 20231106
  25. ACETAMINOPHEN [Concomitant]
     Active Substance: ACETAMINOPHEN
     Indication: Prophylaxis
     Dosage: UNK
     Route: 048
     Dates: start: 20231023, end: 20231023
  26. ACETAMINOPHEN [Concomitant]
     Active Substance: ACETAMINOPHEN
     Dosage: UNK
     Route: 048
     Dates: start: 20231031, end: 20231031
  27. ACETAMINOPHEN [Concomitant]
     Active Substance: ACETAMINOPHEN
     Dosage: UNK
     Route: 048
     Dates: start: 20231106, end: 20231106
  28. ACETAMINOPHEN [Concomitant]
     Active Substance: ACETAMINOPHEN
     Dosage: UNK
     Route: 048
     Dates: start: 20231115, end: 20231115
  29. METOCLOPRAMIDE HYDROCHLORIDE [Concomitant]
     Active Substance: METOCLOPRAMIDE HYDROCHLORIDE
     Indication: Prophylaxis
     Dosage: UNK
     Route: 048
     Dates: start: 20231115, end: 20231115

REACTIONS (3)
  - Cytokine release syndrome [Recovered/Resolved]
  - Pyrexia [Recovered/Resolved]
  - Pyrexia [Recovered/Resolved]

NARRATIVE: CASE EVENT DATE: 20231102
